FAERS Safety Report 17846182 (Version 1)
Quarter: 2020Q2

REPORT INFORMATION
  Report Type: Spontaneous
  Country: FR (occurrence: FR)
  Receive Date: 20200601
  Receipt Date: 20200601
  Transmission Date: 20200714
  Serious: Yes (Other)
  Sender: FDA-Public Use
  Company Number: FR-009507513-2005FRA009230

PATIENT
  Age: 6 Year
  Sex: Male

DRUGS (7)
  1. AMPHOTERICIN B (+) CHOLESTEROL (+) DISTEAROYLPHOSPHATIDYLGLYCEROL (+) [Suspect]
     Active Substance: AMPHOTERICIN B\CHOLESTEROL
     Dosage: 3 MILLIGRAM/KILOGRAM, QD (DAILY)
     Route: 065
  2. FLUCYTOSINE. [Suspect]
     Active Substance: FLUCYTOSINE
     Indication: ANTIFUNGAL TREATMENT
     Dosage: 200 MILLIGRAM/KILOGRAM, DAILY
     Route: 065
  3. POSACONAZOLE [Suspect]
     Active Substance: POSACONAZOLE
     Indication: ANTIFUNGAL TREATMENT
     Dosage: 70 MILLIGRAM, Q8H, TID
     Route: 065
  4. AMPHOTERICIN B (+) CHOLESTEROL (+) DISTEAROYLPHOSPHATIDYLGLYCEROL (+) [Suspect]
     Active Substance: AMPHOTERICIN B\CHOLESTEROL
     Dosage: 10 MILLIGRAM/KILOGRAM, QD, DAILY
     Route: 065
  5. AMPHOTERICIN B (+) CHOLESTEROL (+) DISTEAROYLPHOSPHATIDYLGLYCEROL (+) [Suspect]
     Active Substance: AMPHOTERICIN B\CHOLESTEROL
     Indication: ANTIFUNGAL TREATMENT
     Dosage: 5 MILLIGRAM/KILOGRAM, QD (DAILY)
     Route: 065
  6. VORICONAZOLE. [Suspect]
     Active Substance: VORICONAZOLE
     Dosage: 9 MILLIGRAM/KILOGRAM, UNK
     Route: 065
  7. VORICONAZOLE. [Suspect]
     Active Substance: VORICONAZOLE
     Indication: ANTIFUNGAL TREATMENT
     Dosage: 8 MILLIGRAM/KILOGRAM, UNK
     Route: 065

REACTIONS (5)
  - Liver disorder [Unknown]
  - Drug ineffective [Unknown]
  - Hyponatraemia [Unknown]
  - Vomiting [Unknown]
  - Nausea [Unknown]
